FAERS Safety Report 16912176 (Version 1)
Quarter: 2019Q4

REPORT INFORMATION
  Report Type: Spontaneous
  Country: US (occurrence: US)
  Receive Date: 20191014
  Receipt Date: 20191014
  Transmission Date: 20200122
  Serious: Yes (Death, Hospitalization)
  Sender: FDA-Public Use
  Company Number: US-BEH-2019107636

PATIENT
  Age: 25 Year
  Sex: Female

DRUGS (2)
  1. HUMATE-P [Suspect]
     Active Substance: HUMAN COAGULATION FACTOR VIII/VON WILLEBRAND FACTOR COMPLEX
     Indication: VON WILLEBRAND^S DISEASE
     Dosage: 1974 RCOF Q 12H 2 DOSES PRN
     Route: 042
     Dates: start: 20190531, end: 20190808
  2. HUMATE-P [Suspect]
     Active Substance: HUMAN COAGULATION FACTOR VIII/VON WILLEBRAND FACTOR COMPLEX
     Indication: VON WILLEBRAND^S DISEASE
     Dosage: 1974 RCOF Q 12H 2 DOSES PRN
     Route: 042
     Dates: start: 20190531, end: 20190808

REACTIONS (2)
  - Sepsis [Fatal]
  - Atrial flutter [Unknown]
